FAERS Safety Report 14691443 (Version 5)
Quarter: 2022Q4

REPORT INFORMATION
  Report Type: Spontaneous
  Country: US (occurrence: None)
  Receive Date: 20180328
  Receipt Date: 20221116
  Transmission Date: 20230112
  Serious: Yes (Other)
  Sender: FDA-Public Use
  Company Number: 2018SE36309

PATIENT
  Age: 803 Month
  Sex: Female
  Weight: 123.8 kg

DRUGS (61)
  1. NEXIUM [Suspect]
     Active Substance: ESOMEPRAZOLE MAGNESIUM
     Indication: Gastrooesophageal reflux disease
     Route: 048
  2. NEXIUM [Suspect]
     Active Substance: ESOMEPRAZOLE MAGNESIUM
     Indication: Gastrooesophageal reflux disease
     Route: 048
     Dates: start: 2008, end: 2011
  3. PRILOSEC [Suspect]
     Active Substance: OMEPRAZOLE MAGNESIUM
     Indication: Gastrooesophageal reflux disease
     Dosage: 20.0MG UNKNOWN
     Route: 048
     Dates: start: 2002, end: 2017
  4. PRILOSEC [Suspect]
     Active Substance: OMEPRAZOLE MAGNESIUM
     Indication: Gastrointestinal disorder
     Dosage: 20.0MG UNKNOWN
     Route: 048
     Dates: start: 2002, end: 2017
  5. PRILOSEC [Suspect]
     Active Substance: OMEPRAZOLE MAGNESIUM
     Indication: Gastrooesophageal reflux disease
     Dosage: 20.0MG UNKNOWN
     Route: 048
     Dates: start: 20020126
  6. PRILOSEC [Suspect]
     Active Substance: OMEPRAZOLE MAGNESIUM
     Indication: Gastrointestinal disorder
     Dosage: 20.0MG UNKNOWN
     Route: 048
     Dates: start: 20020126
  7. PRILOSEC [Suspect]
     Active Substance: OMEPRAZOLE MAGNESIUM
     Indication: Gastrooesophageal reflux disease
     Dosage: UNKNOWN
     Route: 065
     Dates: start: 2002
  8. PRILOSEC [Suspect]
     Active Substance: OMEPRAZOLE MAGNESIUM
     Indication: Gastrointestinal disorder
     Dosage: UNKNOWN
     Route: 065
     Dates: start: 2002
  9. PRILOSEC [Suspect]
     Active Substance: OMEPRAZOLE MAGNESIUM
     Indication: Gastrooesophageal reflux disease
     Dosage: PFS- GENERIC UNKNOWN
     Route: 065
     Dates: start: 2008, end: 2010
  10. PRILOSEC [Suspect]
     Active Substance: OMEPRAZOLE MAGNESIUM
     Indication: Gastrointestinal disorder
     Dosage: PFS- GENERIC UNKNOWN
     Route: 065
     Dates: start: 2008, end: 2010
  11. PRILOSEC OTC [Suspect]
     Active Substance: OMEPRAZOLE MAGNESIUM
     Indication: Gastrooesophageal reflux disease
     Dosage: 20.0MG UNKNOWN
     Route: 048
     Dates: start: 2002, end: 2017
  12. PRILOSEC OTC [Suspect]
     Active Substance: OMEPRAZOLE MAGNESIUM
     Indication: Gastrointestinal disorder
     Dosage: 20.0MG UNKNOWN
     Route: 048
     Dates: start: 2002, end: 2017
  13. PRILOSEC OTC [Suspect]
     Active Substance: OMEPRAZOLE MAGNESIUM
     Indication: Gastrooesophageal reflux disease
     Dosage: 20.0MG UNKNOWN
     Route: 048
     Dates: start: 20061111
  14. PRILOSEC OTC [Suspect]
     Active Substance: OMEPRAZOLE MAGNESIUM
     Indication: Gastrointestinal disorder
     Dosage: 20.0MG UNKNOWN
     Route: 048
     Dates: start: 20061111
  15. PREVACID [Suspect]
     Active Substance: LANSOPRAZOLE
     Indication: Gastrooesophageal reflux disease
     Route: 048
     Dates: start: 2002, end: 2017
  16. PREVACID [Suspect]
     Active Substance: LANSOPRAZOLE
     Indication: Gastrointestinal disorder
     Route: 048
     Dates: start: 2002, end: 2017
  17. PREVACID [Suspect]
     Active Substance: LANSOPRAZOLE
     Indication: Gastrooesophageal reflux disease
     Dosage: 30.0MG UNKNOWN
     Route: 048
     Dates: start: 20021126
  18. PREVACID [Suspect]
     Active Substance: LANSOPRAZOLE
     Indication: Gastrointestinal disorder
     Dosage: 30.0MG UNKNOWN
     Route: 048
     Dates: start: 20021126
  19. PROTONIX [Suspect]
     Active Substance: PANTOPRAZOLE SODIUM
     Indication: Gastrooesophageal reflux disease
     Dosage: 40.0MG UNKNOWN
     Route: 048
     Dates: start: 2002, end: 2017
  20. PROTONIX [Suspect]
     Active Substance: PANTOPRAZOLE SODIUM
     Indication: Gastrointestinal disorder
     Dosage: 40.0MG UNKNOWN
     Route: 048
     Dates: start: 2002, end: 2017
  21. PROTONIX [Suspect]
     Active Substance: PANTOPRAZOLE SODIUM
     Indication: Gastrooesophageal reflux disease
     Dosage: 40.0MG UNKNOWN
     Route: 048
     Dates: start: 20031202
  22. PROTONIX [Suspect]
     Active Substance: PANTOPRAZOLE SODIUM
     Indication: Gastrointestinal disorder
     Dosage: 40.0MG UNKNOWN
     Route: 048
     Dates: start: 20031202
  23. PROTONIX [Suspect]
     Active Substance: PANTOPRAZOLE SODIUM
     Indication: Gastrooesophageal reflux disease
     Dosage: PFS UNKNOWN
     Route: 048
     Dates: start: 2003, end: 2017
  24. PROTONIX [Suspect]
     Active Substance: PANTOPRAZOLE SODIUM
     Indication: Gastrointestinal disorder
     Dosage: PFS UNKNOWN
     Route: 048
     Dates: start: 2003, end: 2017
  25. PROTONIX [Suspect]
     Active Substance: PANTOPRAZOLE SODIUM
     Indication: Gastrooesophageal reflux disease
     Dosage: UNKNOWN
     Route: 065
     Dates: start: 2008, end: 2017
  26. PROTONIX [Suspect]
     Active Substance: PANTOPRAZOLE SODIUM
     Indication: Gastrointestinal disorder
     Dosage: UNKNOWN
     Route: 065
     Dates: start: 2008, end: 2017
  27. DEXILANT [Suspect]
     Active Substance: DEXLANSOPRAZOLE
     Route: 065
  28. LIPITOR [Concomitant]
     Active Substance: ATORVASTATIN CALCIUM
     Indication: Blood cholesterol increased
     Route: 065
     Dates: start: 2001, end: 2004
  29. LAMISIL [Concomitant]
     Active Substance: TERBINAFINE HYDROCHLORIDE
     Indication: Fungal infection
     Route: 065
     Dates: start: 2002
  30. ALBUTEROL [Concomitant]
     Active Substance: ALBUTEROL
     Indication: Asthma
     Route: 065
     Dates: start: 2002, end: 2008
  31. ZESTORETIC [Concomitant]
     Active Substance: HYDROCHLOROTHIAZIDE\LISINOPRIL
     Indication: Blood pressure measurement
     Route: 065
     Dates: start: 2002
  32. ECONAZOLE [Concomitant]
     Active Substance: ECONAZOLE
     Indication: Skin infection
     Route: 065
     Dates: start: 2003, end: 2009
  33. HYDROCHLOROTHIAZIDE\LISINOPRIL [Concomitant]
     Active Substance: HYDROCHLOROTHIAZIDE\LISINOPRIL
     Indication: Hypertension
     Route: 065
     Dates: start: 2002, end: 2012
  34. ZANTAC [Concomitant]
     Active Substance: RANITIDINE HYDROCHLORIDE
     Route: 065
     Dates: start: 2017
  35. REGLAN [Concomitant]
     Active Substance: METOCLOPRAMIDE HYDROCHLORIDE
  36. METFORMIN [Concomitant]
     Active Substance: METFORMIN HYDROCHLORIDE
  37. ASPIRIN [Concomitant]
     Active Substance: ASPIRIN
     Indication: Cardiac disorder
  38. RANITIDINE [Concomitant]
     Active Substance: RANITIDINE
     Dosage: GENERIC
     Route: 065
     Dates: start: 2002, end: 2003
  39. DOXYCYCLINE [Concomitant]
     Active Substance: DOXYCYCLINE
  40. ERYTHROMYCIN [Concomitant]
     Active Substance: ERYTHROMYCIN
  41. NASACORT [Concomitant]
     Active Substance: TRIAMCINOLONE ACETONIDE
  42. METOCLOMAPRAMIDE [Concomitant]
  43. DILTIAZEM [Concomitant]
     Active Substance: DILTIAZEM
  44. MYCELEX [Concomitant]
     Active Substance: CLOTRIMAZOLE
  45. XOPENEX [Concomitant]
     Active Substance: LEVALBUTEROL HYDROCHLORIDE
  46. ZOCOR [Concomitant]
     Active Substance: SIMVASTATIN
  47. DIAZEPAM [Concomitant]
     Active Substance: DIAZEPAM
  48. PRIMIDONE [Concomitant]
     Active Substance: PRIMIDONE
  49. HYDROCHLOROTHIAZIDE\LISINOPRIL [Concomitant]
     Active Substance: HYDROCHLOROTHIAZIDE\LISINOPRIL
  50. CLOTRIMAZOLE [Concomitant]
     Active Substance: CLOTRIMAZOLE
  51. CLOPIDOGREL [Concomitant]
     Active Substance: CLOPIDOGREL BISULFATE
  52. MOMETASONE [Concomitant]
     Active Substance: MOMETASONE
  53. CYCLOBENZAPRINE [Concomitant]
     Active Substance: CYCLOBENZAPRINE
  54. CARAFATE [Concomitant]
     Active Substance: SUCRALFATE
  55. DRISDOL [Concomitant]
     Active Substance: ERGOCALCIFEROL
  56. FISH OIL [Concomitant]
     Active Substance: FISH OIL
  57. MYSOLINE [Concomitant]
     Active Substance: PRIMIDONE
  58. NEURONTIN [Concomitant]
     Active Substance: GABAPENTIN
  59. IMDUR [Concomitant]
     Active Substance: ISOSORBIDE MONONITRATE
  60. SYNTHROID [Concomitant]
     Active Substance: LEVOTHYROXINE SODIUM
  61. PROVENTIL [Concomitant]
     Active Substance: ALBUTEROL

REACTIONS (4)
  - Acute kidney injury [Unknown]
  - Chronic kidney disease [Not Recovered/Not Resolved]
  - Nephrogenic anaemia [Unknown]
  - Hyperparathyroidism secondary [Unknown]

NARRATIVE: CASE EVENT DATE: 20120901
